FAERS Safety Report 17386439 (Version 1)
Quarter: 2020Q1

REPORT INFORMATION
  Report Type: Report from Study
  Country: IT (occurrence: IT)
  Receive Date: 20200206
  Receipt Date: 20200206
  Transmission Date: 20200409
  Serious: Yes (Death, Hospitalization, Other)
  Sender: FDA-Public Use
  Company Number: IT-BRISTOL-MYERS SQUIBB COMPANY-BMS-2019-020166

PATIENT
  Age: 64 Year
  Sex: Male
  Weight: 90 kg

DRUGS (2)
  1. NIVOLUMAB [Suspect]
     Active Substance: NIVOLUMAB
     Indication: LUNG NEOPLASM MALIGNANT
     Dosage: 240 MG, 1 CYCLICAL
     Route: 042
     Dates: start: 20170707, end: 20190125
  2. NIVOLUMAB [Suspect]
     Active Substance: NIVOLUMAB
     Indication: LUNG ADENOCARCINOMA
     Route: 065

REACTIONS (6)
  - Pneumonitis [Fatal]
  - Dyspnoea [Fatal]
  - Respiratory failure [Fatal]
  - Asthenia [Fatal]
  - Interstitial lung disease [Recovered/Resolved with Sequelae]
  - Pulmonary fibrosis [Fatal]

NARRATIVE: CASE EVENT DATE: 20190204
